FAERS Safety Report 5754485-9 (Version None)
Quarter: 2008Q2

REPORT INFORMATION
  Report Type: 
  Country: None (occurrence: None)
  Receive Date: 20080530
  Receipt Date: 20080310
  Transmission Date: 20081010
  Serious: No
  Sender: FDA-Public Use
  Company Number: US-BOEHRINGER INGELHEIM GMBH, GERMANY-2007-BP-16372BP

PATIENT
  Sex: Male

DRUGS (14)
  1. MIRAPEX [Suspect]
     Indication: PARKINSON'S DISEASE
     Dates: start: 20041116, end: 20060201
  2. XANAX [Concomitant]
     Indication: ANXIETY
  3. PERCOCET [Concomitant]
     Indication: PAIN
  4. NEUPRO [Concomitant]
     Indication: PARKINSON'S DISEASE
  5. CARBIDOPA AND LEVODOPA [Concomitant]
     Indication: PARKINSON'S DISEASE
  6. PACSUN [Concomitant]
     Indication: DEPRESSION
  7. VISICOL [Concomitant]
  8. LIDODERM [Concomitant]
  9. NEURONTIN [Concomitant]
  10. PREVACID [Concomitant]
  11. NAPROXEN [Concomitant]
  12. ASPIRIN [Concomitant]
  13. ACIPHEX [Concomitant]
  14. NIOTROL INHALER [Concomitant]

REACTIONS (5)
  - DEPRESSION [None]
  - EMOTIONAL DISTRESS [None]
  - INJURY [None]
  - OBSESSIVE-COMPULSIVE DISORDER [None]
  - PATHOLOGICAL GAMBLING [None]
